FAERS Safety Report 8174126-3 (Version None)
Quarter: 2012Q1

REPORT INFORMATION
  Report Type: 
  Country: None (occurrence: None)
  Receive Date: 20120229
  Receipt Date: 20120220
  Transmission Date: 20120608
  Serious: Yes (Other)
  Sender: FDA-Public Use
  Company Number: US-ASTRAZENECA-2012SE11887

PATIENT
  Age: 68 Year
  Sex: Female
  Weight: 90.7 kg

DRUGS (6)
  1. NEXIUM [Suspect]
     Indication: GASTROOESOPHAGEAL REFLUX DISEASE
     Route: 048
  2. KLONOPIN [Concomitant]
  3. LEXAPRO [Concomitant]
  4. PRILOSEC [Suspect]
     Indication: GASTROOESOPHAGEAL REFLUX DISEASE
     Route: 048
  5. TRILEPTAL [Concomitant]
     Indication: CONVULSION
  6. SULINDAC [Concomitant]
     Indication: OSTEOPOROSIS

REACTIONS (8)
  - PETIT MAL EPILEPSY [None]
  - ATTENTION DEFICIT/HYPERACTIVITY DISORDER [None]
  - WEIGHT INCREASED [None]
  - HUNGER [None]
  - ASPIRATION [None]
  - DRUG INEFFECTIVE [None]
  - MENTAL DISORDER [None]
  - CHOKING [None]
